FAERS Safety Report 25349354 (Version 3)
Quarter: 2025Q3

REPORT INFORMATION
  Report Type: Spontaneous
  Country: JP (occurrence: JP)
  Receive Date: 20250522
  Receipt Date: 20250810
  Transmission Date: 20251021
  Serious: Yes (Other)
  Sender: ALEXION PHARMACEUTICALS
  Company Number: JP-ASTRAZENECA-250022690_011620_P_1

PATIENT
  Age: 72 Year
  Sex: Female
  Weight: 59 kg

DRUGS (14)
  1. LYNPARZA [Suspect]
     Active Substance: OLAPARIB
     Indication: Ovarian cancer
     Dosage: 300 MILLIGRAM, BID
     Dates: start: 20230830, end: 20230913
  2. LYNPARZA [Suspect]
     Active Substance: OLAPARIB
     Dates: start: 20231011, end: 20231122
  3. LYNPARZA [Suspect]
     Active Substance: OLAPARIB
     Dates: start: 20240110, end: 20240131
  4. LYNPARZA [Suspect]
     Active Substance: OLAPARIB
     Dates: start: 20240221, end: 20240403
  5. LYNPARZA [Suspect]
     Active Substance: OLAPARIB
     Dates: start: 20240515, end: 20240724
  6. LYNPARZA [Suspect]
     Active Substance: OLAPARIB
     Dates: start: 20240814, end: 20240925
  7. BEVACIZUMAB [Suspect]
     Active Substance: BEVACIZUMAB
     Indication: Ovarian cancer
     Route: 065
  8. BEVACIZUMAB [Suspect]
     Active Substance: BEVACIZUMAB
     Route: 065
     Dates: start: 20231011, end: 20231122
  9. BEVACIZUMAB [Suspect]
     Active Substance: BEVACIZUMAB
     Route: 065
     Dates: start: 20240110, end: 20240131
  10. BEVACIZUMAB [Suspect]
     Active Substance: BEVACIZUMAB
     Route: 065
     Dates: start: 20240221, end: 20240403
  11. BEVACIZUMAB [Suspect]
     Active Substance: BEVACIZUMAB
     Route: 065
     Dates: start: 20240515, end: 20240724
  12. BEVACIZUMAB [Suspect]
     Active Substance: BEVACIZUMAB
     Route: 065
     Dates: start: 20240814, end: 20240925
  13. AMLODIPINE [Concomitant]
     Active Substance: AMLODIPINE BESYLATE
     Indication: Hypertension
     Dosage: 5 MILLIGRAM, QD
     Dates: start: 20221228
  14. CANDESARTAN [Concomitant]
     Active Substance: CANDESARTAN
     Indication: Hypertension
     Dosage: 4 MILLIGRAM, QD
     Dates: start: 20230111

REACTIONS (2)
  - Thrombocytopenia [Recovered/Resolved]
  - Protein urine [Unknown]

NARRATIVE: CASE EVENT DATE: 20230913
